FAERS Safety Report 8303486-5 (Version None)
Quarter: 2012Q2

REPORT INFORMATION
  Report Type: 
  Country: None (occurrence: None)
  Receive Date: 20120418
  Receipt Date: 20120402
  Transmission Date: 20120825
  Serious: Yes (Death)
  Sender: FDA-Public Use
  Company Number: DSA_55288_2012

PATIENT
  Sex: Male

DRUGS (9)
  1. RISPERIDONE [Concomitant]
  2. LEVAQUIN [Concomitant]
  3. CELEXA [Concomitant]
  4. KLONOPIN [Concomitant]
  5. TRAZODONE HCL [Concomitant]
  6. NAMENDA [Concomitant]
  7. XENAZINE [Suspect]
     Indication: HUNTINGTON'S DISEASE
     Dosage: 37.5 MG QID, ORAL
     Route: 048
     Dates: start: 20091103, end: 20120228
  8. ATIVAN [Concomitant]
  9. HALDOL [Concomitant]

REACTIONS (2)
  - CYP2D6 POLYMORPHISM [None]
  - OVERDOSE [None]
